FAERS Safety Report 8589991-5 (Version None)
Quarter: 2012Q3

REPORT INFORMATION
  Report Type: 
  Country: None (occurrence: None)
  Receive Date: 20120813
  Receipt Date: 20120802
  Transmission Date: 20120928
  Serious: Yes (Hospitalization, Other)
  Sender: FDA-Public Use
  Company Number: GB-ELI_LILLY_AND_COMPANY-GB201206007131

PATIENT
  Sex: Male

DRUGS (5)
  1. HUMALOG [Suspect]
     Indication: TYPE 1 DIABETES MELLITUS
     Dosage: UNK UNK, PRN
     Dates: end: 20120620
  2. LANTUS [Concomitant]
  3. SIMVASTATIN [Concomitant]
  4. LEVEMIR [Concomitant]
  5. RAMIPRIL [Concomitant]

REACTIONS (7)
  - INJECTION SITE ERYTHEMA [None]
  - INJECTION SITE PAIN [None]
  - INJECTION SITE SWELLING [None]
  - PANCREAS TRANSPLANT [None]
  - DIABETIC KETOACIDOSIS [None]
  - PANCREAS TRANSPLANT REJECTION [None]
  - DRUG HYPERSENSITIVITY [None]
